FAERS Safety Report 16407476 (Version 1)
Quarter: 2019Q2

REPORT INFORMATION
  Report Type: Spontaneous
  Country: GB (occurrence: GB)
  Receive Date: 20190608
  Receipt Date: 20190608
  Transmission Date: 20190711
  Serious: Yes (Hospitalization, Other)
  Sender: FDA-Public Use
  Company Number: PHHY2019GB127976

PATIENT
  Age: 42 Year
  Sex: Female

DRUGS (1)
  1. SECUKINUMAB. [Suspect]
     Active Substance: SECUKINUMAB
     Indication: PSORIATIC ARTHROPATHY
     Route: 065

REACTIONS (10)
  - Sepsis [Recovered/Resolved]
  - Cardiomyopathy [Recovered/Resolved]
  - Pyrexia [Recovered/Resolved]
  - Haemodynamic instability [Recovered/Resolved]
  - Systemic candida [Recovered/Resolved]
  - Systemic candida [Unknown]
  - Acute kidney injury [Unknown]
  - Malaise [Recovered/Resolved]
  - Ventricular dysfunction [Recovered/Resolved]
  - Sepsis [Unknown]
